FAERS Safety Report 7560287-3 (Version None)
Quarter: 2011Q2

REPORT INFORMATION
  Report Type: 
  Country: None (occurrence: None)
  Receive Date: 20110621
  Receipt Date: 20110607
  Transmission Date: 20111010
  Serious: Yes (Other)
  Sender: FDA-Public Use
  Company Number: US-JNJFOC-20110603759

PATIENT
  Age: 3 Decade
  Sex: Male

DRUGS (6)
  1. INVEGA [Suspect]
     Route: 048
     Dates: start: 20110601
  2. INVEGA SUSTENNA [Suspect]
     Route: 030
     Dates: start: 20110501, end: 20110501
  3. UNKNOWN MEDICATION [Concomitant]
     Route: 065
     Dates: start: 20110601
  4. INVEGA [Suspect]
     Indication: PRODUCT USED FOR UNKNOWN INDICATION
     Route: 048
     Dates: start: 20100101, end: 20110501
  5. ATIVAN [Concomitant]
     Indication: HALLUCINATION, VISUAL
     Route: 065
     Dates: start: 20110601
  6. INVEGA SUSTENNA [Suspect]
     Indication: PRODUCT USED FOR UNKNOWN INDICATION
     Route: 030
     Dates: start: 20110601, end: 20110601

REACTIONS (4)
  - ORTHOSTATIC HYPOTENSION [None]
  - PAIN [None]
  - HALLUCINATION, VISUAL [None]
  - DIZZINESS [None]
